FAERS Safety Report 10029265 (Version 2)
Quarter: 2014Q1

REPORT INFORMATION
  Report Type: Report from Study
  Country: CA (occurrence: CA)
  Receive Date: 20140321
  Receipt Date: 20140321
  Transmission Date: 20141002
  Serious: Yes (Life-Threatening, Hospitalization, Other)
  Sender: FDA-Public Use
  Company Number: PHHO2012CA007985

PATIENT
  Age: 38 Year
  Sex: Female
  Weight: 75.8 kg

DRUGS (7)
  1. PLACEBO [Suspect]
     Indication: PANCREATIC NEUROENDOCRINE TUMOUR
     Dosage: UNK
     Route: 048
     Dates: start: 20081030
  2. EVEROLIMUS [Suspect]
     Indication: CHEMOTHERAPY MULTIPLE AGENTS SYSTEMIC
     Dosage: 10 MG, QD
     Route: 048
     Dates: start: 20100608, end: 20120517
  3. EVEROLIMUS [Suspect]
     Dosage: UNK
     Route: 048
     Dates: start: 20120518
  4. EVEROLIMUS [Suspect]
     Dosage: UNK
     Route: 048
     Dates: start: 20120605
  5. EVEROLIMUS [Suspect]
     Dosage: 10 MG, QD
     Route: 048
     Dates: end: 20121202
  6. EVEROLIMUS [Suspect]
     Dosage: UNK
     Dates: start: 20121218
  7. INFLUENZA VACCINE [Concomitant]
     Indication: PROPHYLAXIS
     Dosage: UNK
     Dates: start: 20121118

REACTIONS (2)
  - Febrile neutropenia [Recovered/Resolved]
  - Gastritis [Recovered/Resolved]
